FAERS Safety Report 8463153-4 (Version None)
Quarter: 2012Q2

REPORT INFORMATION
  Report Type: 
  Country: None (occurrence: None)
  Receive Date: 20120323
  Receipt Date: 20111114
  Transmission Date: 20120825
  Serious: Yes (Hospitalization, Other)
  Sender: FDA-Public Use
  Company Number: 163-21880-11092936

PATIENT
  Age: 57 Year
  Sex: Male
  Weight: 89.4 kg

DRUGS (6)
  1. DEXAMETHASONE [Concomitant]
  2. VELCADE [Concomitant]
  3. REVLIMID [Suspect]
     Indication: MULTIPLE MYELOMA
     Dosage: 15 MG, 1 IN 1 D, PO ; 5 MG, 1 IN 1 D, PO
     Route: 048
     Dates: start: 20110901
  4. REVLIMID [Suspect]
     Indication: MULTIPLE MYELOMA
     Dosage: 15 MG, 1 IN 1 D, PO ; 5 MG, 1 IN 1 D, PO
     Route: 048
     Dates: start: 20110901
  5. KAYEXALATE [Concomitant]
  6. CYTOXAN [Concomitant]

REACTIONS (1)
  - RENAL FAILURE ACUTE [None]
